FAERS Safety Report 9553759 (Version 1)
Quarter: 2013Q3

REPORT INFORMATION
  Report Type: Spontaneous
  Country: US (occurrence: None)
  Receive Date: 20130814
  Receipt Date: 20130814
  Transmission Date: 20140515
  Serious: No
  Sender: FDA-Public Use
  Company Number: 1108USA00220

PATIENT
  Age: 73 Year
  Sex: Male

DRUGS (2)
  1. PROSCAR [Suspect]
     Indication: BENIGN PROSTATIC HYPERPLASIA
     Route: 048
     Dates: start: 201102
  2. FLOMAX (MORNIFLUMATE) (MORNIFLUMATE) [Concomitant]

REACTIONS (2)
  - Scintillating scotoma [None]
  - Neutrophil count decreased [None]
